FAERS Safety Report 13027066 (Version 3)
Quarter: 2017Q2

REPORT INFORMATION
  Report Type: Spontaneous
  Country: FR (occurrence: FR)
  Receive Date: 20161214
  Receipt Date: 20170405
  Transmission Date: 20170830
  Serious: Yes (Disabling, Other)
  Sender: FDA-Public Use
  Company Number: FR-AMGEN-FRASP2016173525

PATIENT
  Age: 87 Year
  Sex: Male
  Weight: 72 kg

DRUGS (4)
  1. XGEVA [Suspect]
     Active Substance: DENOSUMAB
     Indication: PROSTATE CANCER
     Dosage: UNK UNK, Q4WK
     Route: 065
     Dates: start: 20151031, end: 20160430
  2. CASODEX [Concomitant]
     Active Substance: BICALUTAMIDE
     Dosage: UNK
  3. XGEVA [Suspect]
     Active Substance: DENOSUMAB
     Indication: METASTASES TO BONE
  4. ZOLADEX [Concomitant]
     Active Substance: GOSERELIN ACETATE
     Dosage: UNK

REACTIONS (6)
  - Cellulitis [Unknown]
  - Ear pain [Unknown]
  - Osteonecrosis of jaw [Not Recovered/Not Resolved]
  - Body temperature abnormal [Unknown]
  - Osteitis [Unknown]
  - Jaw disorder [Unknown]

NARRATIVE: CASE EVENT DATE: 20160518
